FAERS Safety Report 7688652 (Version 8)
Quarter: 2014Q1

REPORT INFORMATION
  Report Type: Spontaneous
  Country: US (occurrence: US)
  Receive Date: 20101201
  Receipt Date: 20140311
  Transmission Date: 20141002
  Serious: Yes (Hospitalization, Other)
  Sender: FDA-Public Use
  Company Number: US-ROCHE-718694

PATIENT
  Age: 36 Year
  Sex: Male
  Weight: 66.7 kg

DRUGS (3)
  1. ACCUTANE [Suspect]
     Indication: ACNE
     Route: 065
  2. ACCUTANE [Suspect]
     Route: 065
     Dates: start: 200004, end: 200006
  3. TESTOSTERONE [Concomitant]

REACTIONS (8)
  - Suicidal ideation [Unknown]
  - Depression [Unknown]
  - Proctitis ulcerative [Unknown]
  - Gastrointestinal injury [Unknown]
  - Inflammatory bowel disease [Unknown]
  - Insomnia [Unknown]
  - Nephrolithiasis [Unknown]
  - Lip dry [Unknown]
